FAERS Safety Report 10341580 (Version 1)
Quarter: 2014Q3

REPORT INFORMATION
  Report Type: Spontaneous
  Country: JP (occurrence: JP)
  Receive Date: 20140725
  Receipt Date: 20140725
  Transmission Date: 20150326
  Serious: Yes (Other)
  Sender: FDA-Public Use
  Company Number: JP-AMGEN INC.-JPNSP2014055823

PATIENT
  Age: 65 Year
  Sex: Male

DRUGS (1)
  1. ENBREL [Suspect]
     Active Substance: ETANERCEPT
     Indication: PRODUCT USED FOR UNKNOWN INDICATION
     Dosage: 25 MG, UNK
     Route: 058

REACTIONS (7)
  - Sputum increased [Unknown]
  - Fall [Unknown]
  - Empyema [Unknown]
  - Myalgia [Unknown]
  - Dyspnoea at rest [Unknown]
  - Nasal congestion [Unknown]
  - Insomnia [Unknown]

NARRATIVE: CASE EVENT DATE: 201302
